FAERS Safety Report 7997487-4 (Version None)
Quarter: 2011Q4

REPORT INFORMATION
  Report Type: 
  Country: None (occurrence: None)
  Receive Date: 20111221
  Receipt Date: 20111221
  Transmission Date: 20120403
  Serious: Yes (Other)
  Sender: FDA-Public Use
  Company Number: None

PATIENT
  Age: 53 Year
  Sex: Female
  Weight: 61.234 kg

DRUGS (2)
  1. PROMETRIUM [Suspect]
     Indication: MENOPAUSAL SYMPTOMS
     Dosage: 100 MG
     Route: 048
     Dates: start: 20100415, end: 20111220
  2. PROMETRIUM [Suspect]
     Indication: HORMONE REPLACEMENT THERAPY
     Dosage: 100 MG
     Route: 048
     Dates: start: 20100415, end: 20111220

REACTIONS (5)
  - IRRITABILITY [None]
  - PRODUCT SIZE ISSUE [None]
  - MENSTRUAL DISORDER [None]
  - VAGINAL HAEMORRHAGE [None]
  - PRODUCT COLOUR ISSUE [None]
